FAERS Safety Report 17594290 (Version 1)
Quarter: 2020Q1

REPORT INFORMATION
  Report Type: Spontaneous
  Country: PL (occurrence: PL)
  Receive Date: 20200327
  Receipt Date: 20200327
  Transmission Date: 20200409
  Serious: Yes (Other)
  Sender: FDA-Public Use
  Company Number: PL-OXFORD PHARMACEUTICALS, LLC-2020OXF00046

PATIENT
  Age: 59 Year
  Sex: Male

DRUGS (4)
  1. INDAPAMIDE. [Concomitant]
     Active Substance: INDAPAMIDE
     Route: 065
  2. RISPERIDONE. [Suspect]
     Active Substance: RISPERIDONE
     Route: 065
  3. LOSARTAN. [Suspect]
     Active Substance: LOSARTAN
     Route: 065
  4. LITHIUM SALTS [Concomitant]
     Route: 065

REACTIONS (2)
  - Atrial fibrillation [Unknown]
  - Drug interaction [Unknown]
